FAERS Safety Report 19820732 (Version 1)
Quarter: 2021Q3

REPORT INFORMATION
  Report Type: Spontaneous
  Country: US (occurrence: US)
  Receive Date: 20210910
  Receipt Date: 20210910
  Transmission Date: 20211014
  Serious: No
  Sender: FDA-Public Use
  Company Number: None

PATIENT
  Age: 74 Year
  Sex: Male
  Weight: 95 kg

DRUGS (1)
  1. ATEZOLIZUMAB (ATEZOLIZUMAB 60MG/ML INJ, SOLN) [Suspect]
     Active Substance: ATEZOLIZUMAB
     Indication: HEPATOCELLULAR CARCINOMA
     Dosage: ?          OTHER FREQUENCY:N/A;?
     Route: 042
     Dates: start: 20210503, end: 20210706

REACTIONS (1)
  - Immune-mediated encephalitis [None]

NARRATIVE: CASE EVENT DATE: 20210730
